FAERS Safety Report 9646549 (Version 3)
Quarter: 2014Q1

REPORT INFORMATION
  Report Type: Spontaneous
  Country: US (occurrence: US)
  Receive Date: 20131025
  Receipt Date: 20140211
  Transmission Date: 20141002
  Serious: Yes (Death, Hospitalization, Other)
  Sender: FDA-Public Use
  Company Number: US-EXELIXIS-CABO-13003417

PATIENT
  Sex: Male

DRUGS (6)
  1. COMETRIQ [Suspect]
     Indication: THYROID CANCER
     Dosage: 40 MG, QD
     Route: 048
     Dates: start: 20130713, end: 20130809
  2. COMETRIQ [Suspect]
     Dosage: 40 MG, QD
     Route: 048
     Dates: start: 20130812, end: 20130926
  3. ATENOLOL [Concomitant]
  4. LISINOPRIL [Concomitant]
  5. VITAMIN E [Concomitant]
  6. COUMADIN [Concomitant]

REACTIONS (2)
  - Death [Fatal]
  - Coma [Not Recovered/Not Resolved]
